FAERS Safety Report 8905948 (Version 2)
Quarter: 2012Q4

REPORT INFORMATION
  Report Type: Report from Study
  Country: GB (occurrence: GB)
  Receive Date: 20121109
  Receipt Date: 20121121
  Transmission Date: 20130627
  Serious: Yes (Hospitalization)
  Sender: FDA-Public Use
  Company Number: GB-GLAXOSMITHKLINE-A0890379B

PATIENT
  Age: 69 Year
  Sex: Male

DRUGS (2)
  1. PAZOPANIB [Suspect]
     Indication: RENAL CANCER
     Route: 048
     Dates: start: 20101006
  2. BEVACIZUMAB [Suspect]
     Indication: RENAL CANCER
     Route: 042
     Dates: start: 20100817

REACTIONS (2)
  - Dyspnoea [Not Recovered/Not Resolved]
  - Chest pain [Not Recovered/Not Resolved]
